FAERS Safety Report 6005063-8 (Version None)
Quarter: 2008Q4

REPORT INFORMATION
  Report Type: 
  Country: None (occurrence: None)
  Receive Date: 20081216
  Receipt Date: 20081208
  Transmission Date: 20090506
  Serious: Yes (Other)
  Sender: FDA-Public Use
  Company Number: PHHY2008FR26608

PATIENT
  Sex: Female
  Weight: 78 kg

DRUGS (6)
  1. ZOLEDRONIC ACID [Suspect]
     Indication: OSTEOPOROSIS POSTMENOPAUSAL
     Dosage: 5 MG, ONCE/SINGLE
     Dates: start: 20080908, end: 20080908
  2. ESOMEPRAZOLE MAGNESIUM [Concomitant]
     Indication: BARRETT'S OESOPHAGUS
     Dosage: 20 MG, QD
     Route: 048
  3. SIVASTIN [Concomitant]
     Indication: HYPERCHOLESTEROLAEMIA
     Dosage: 1 DF, QD
     Route: 048
  4. ESIDRIX [Concomitant]
  5. POTASSIUM CHLORIDE [Concomitant]
     Dosage: 1 DF, QD
  6. DENSICAL VITAMINE D3 [Concomitant]
     Indication: OSTEOPOROSIS
     Dosage: 2 DF PER DAY

REACTIONS (10)
  - ARTHRALGIA [None]
  - EYE DISCHARGE [None]
  - EYE PAIN [None]
  - FACIAL PAIN [None]
  - FATIGUE [None]
  - HYPERTENSION [None]
  - INFLUENZA LIKE ILLNESS [None]
  - JOINT SWELLING [None]
  - VISION BLURRED [None]
  - VISUAL ACUITY REDUCED [None]
